FAERS Safety Report 25736040 (Version 1)
Quarter: 2025Q3

REPORT INFORMATION
  Report Type: Spontaneous
  Country: EU (occurrence: EU)
  Receive Date: 20250828
  Receipt Date: 20250828
  Transmission Date: 20251021
  Serious: Yes (Hospitalization, Other)
  Sender: PFIZER
  Company Number: EU-PFIZER INC-PV202500103232

PATIENT
  Age: 10 Year
  Sex: Female

DRUGS (2)
  1. NGENLA [Suspect]
     Active Substance: SOMATROGON-GHLA
     Dosage: 12.5 MG, WEEKLY
     Route: 058
     Dates: end: 2025
  2. NGENLA [Suspect]
     Active Substance: SOMATROGON-GHLA
     Dosage: 12.5 MG, WEEKLY
     Route: 058
     Dates: start: 20250704

REACTIONS (2)
  - Weight decreased [Recovering/Resolving]
  - Wound infection staphylococcal [Recovered/Resolved]

NARRATIVE: CASE EVENT DATE: 20250101
